FAERS Safety Report 9924936 (Version 1)
Quarter: 2014Q1

REPORT INFORMATION
  Report Type: Spontaneous
  Country: US (occurrence: None)
  Receive Date: 20140224
  Receipt Date: 20140224
  Transmission Date: 20141002
  Serious: No
  Sender: FDA-Public Use
  Company Number: None

PATIENT
  Sex: Female

DRUGS (9)
  1. GABAPENTIN [Suspect]
     Indication: NEUROPATHY PERIPHERAL
     Route: 048
  2. PROZAC [Suspect]
     Indication: DEPRESSION
  3. WELLBUTRIN [Concomitant]
  4. LISINOPRIL [Concomitant]
  5. NORVIR [Concomitant]
  6. TRUVADA [Concomitant]
  7. PREZISTA [Concomitant]
  8. BACTRIM [Concomitant]
  9. ZITHROMAX [Concomitant]

REACTIONS (5)
  - Nausea [None]
  - Diarrhoea [None]
  - Fatigue [None]
  - Somnolence [None]
  - Drug interaction [None]
